FAERS Safety Report 7347741-4 (Version None)
Quarter: 2011Q1

REPORT INFORMATION
  Report Type: 
  Country: None (occurrence: None)
  Receive Date: 20110311
  Receipt Date: 20110228
  Transmission Date: 20110831
  Serious: Yes (Other)
  Sender: FDA-Public Use
  Company Number: US-BAXTER-2011BH005933

PATIENT

DRUGS (1)
  1. BUMINATE 25% [Suspect]
     Indication: PROPHYLAXIS
     Route: 042

REACTIONS (1)
  - ATRIAL FIBRILLATION [None]
